FAERS Safety Report 7468996-1 (Version None)
Quarter: 2011Q2

REPORT INFORMATION
  Report Type: 
  Country: None (occurrence: None)
  Receive Date: 20110510
  Receipt Date: 20110503
  Transmission Date: 20111010
  Serious: Yes (Hospitalization)
  Sender: FDA-Public Use
  Company Number: MX-ELI_LILLY_AND_COMPANY-MX201105000871

PATIENT
  Sex: Male

DRUGS (3)
  1. METFORMIN HCL [Concomitant]
  2. HUMALOG MIX 75/25 [Suspect]
     Dosage: UNK, EACH EVENING
     Dates: start: 20110418, end: 20110424
  3. HUMALOG MIX 75/25 [Suspect]
     Indication: DIABETES MELLITUS
     Dosage: 25 IU, EACH MORNING
     Dates: start: 20110418, end: 20110424

REACTIONS (1)
  - HOSPITALISATION [None]
